FAERS Safety Report 5524638-3 (Version None)
Quarter: 2007Q4

REPORT INFORMATION
  Report Type: 
  Country: None (occurrence: None)
  Receive Date: 20071123
  Receipt Date: 20071120
  Transmission Date: 20080405
  Serious: Yes (Hospitalization, Other)
  Sender: FDA-Public Use
  Company Number: NL-SHR-NL-2007-042932

PATIENT
  Age: 48 Year
  Sex: Female

DRUGS (9)
  1. ANGELIQ [Suspect]
     Indication: MENOPAUSAL SYMPTOMS
     Dosage: 1 TAB(S), 21D/28D
     Route: 048
     Dates: start: 20070910, end: 20071015
  2. ACETYLSALICYLIC ACID SRT [Concomitant]
  3. COZAAR [Concomitant]
  4. LESCOL [Concomitant]
  5. PROGRAFT [Concomitant]
  6. METOPROLOL [Concomitant]
  7. OMEPRAZOLE [Concomitant]
  8. PREDNISOLONE [Concomitant]
  9. CELLCEPT [Concomitant]
     Dosage: 1 TAB(S), 2X/DAY
     Route: 048

REACTIONS (2)
  - BLINDNESS UNILATERAL [None]
  - RETINAL VASCULAR OCCLUSION [None]
